FAERS Safety Report 12271110 (Version 1)
Quarter: 2016Q2

REPORT INFORMATION
  Report Type: Spontaneous
  Country: US (occurrence: None)
  Receive Date: 20160414
  Receipt Date: 20160414
  Transmission Date: 20160815
  Serious: No
  Sender: FDA-Public Use
  Company Number: None

PATIENT
  Age: 34 Year
  Sex: Male

DRUGS (5)
  1. ALEVE [Concomitant]
     Active Substance: NAPROXEN SODIUM
  2. VITAMIN B50 [Concomitant]
  3. TYLENOL [Concomitant]
     Active Substance: ACETAMINOPHEN
  4. CLINDAMYCIN [Concomitant]
     Active Substance: CLINDAMYCIN\CLINDAMYCIN PHOSPHATE
  5. TASIGNA [Suspect]
     Active Substance: NILOTINIB
     Indication: NEOPLASM MALIGNANT
     Route: 048
     Dates: start: 20151204

REACTIONS (1)
  - Fatigue [None]

NARRATIVE: CASE EVENT DATE: 2011
